FAERS Safety Report 4790107-1 (Version None)
Quarter: 2005Q4

REPORT INFORMATION
  Report Type: 
  Country: None (occurrence: None)
  Receive Date: 20051006
  Receipt Date: 20050411
  Transmission Date: 20060501
  Serious: Yes (Hospitalization)
  Sender: FDA-Public Use
  Company Number: ES-ROCHE-401629

PATIENT
  Age: 56 Year
  Sex: Male

DRUGS (24)
  1. DACLIZUMAB [Suspect]
     Route: 042
     Dates: start: 20041108, end: 20041108
  2. MYCOPHENOLATE MOFETIL [Suspect]
     Route: 042
     Dates: start: 20041108, end: 20041112
  3. MYCOPHENOLATE MOFETIL [Suspect]
     Route: 048
     Dates: start: 20041113, end: 20050329
  4. MYCOPHENOLATE MOFETIL [Suspect]
     Route: 048
     Dates: start: 20050330
  5. TACROLIMUS [Suspect]
     Dosage: DOSAGE ADJUSTED TO REACH PREDEFINED TARGET LEVELS.
     Route: 048
     Dates: start: 20041113
  6. PREDNISONE [Suspect]
     Dosage: DOSAGE TAPERED ACCORDING TO LOCAL PROTOCOL.
     Route: 065
     Dates: start: 20041109, end: 20050209
  7. PANTOPRAZOLE [Concomitant]
     Indication: PROPHYLAXIS
     Dates: start: 20041108, end: 20041116
  8. MORPHINE [Concomitant]
     Dates: start: 20041108, end: 20041108
  9. INSULINE [Concomitant]
     Indication: HYPERGLYCAEMIA
     Dates: start: 20041108, end: 20041109
  10. FUROSEMIDE [Concomitant]
     Indication: DIURETIC THERAPY
     Dates: start: 20041109, end: 20041109
  11. TRAMADOL HYDROCHLORIDE [Concomitant]
     Dates: start: 20041109, end: 20041115
  12. VANCOMYCIN [Concomitant]
     Indication: INFECTION
     Dates: start: 20041109, end: 20041109
  13. AZTREONAM [Concomitant]
     Indication: INFECTION
     Dates: start: 20041109, end: 20041110
  14. GAMMAGLOBULIN INFUSION [Concomitant]
     Indication: PROPHYLAXIS
     Dates: start: 20041109, end: 20050322
  15. METOCLOPRAMIDE HCL [Concomitant]
     Indication: ANTIEMETIC SUPPORTIVE CARE
     Dates: start: 20041109, end: 20041109
  16. NYSTATINE [Concomitant]
     Indication: PROPHYLAXIS
     Dates: start: 20041109, end: 20041113
  17. BEMIPARIN SODIUM [Concomitant]
     Indication: THROMBOSIS PROPHYLAXIS
     Dates: start: 20041110, end: 20041115
  18. LAMIVUDINE [Concomitant]
     Indication: PROPHYLAXIS
     Dates: start: 20041109
  19. ALBUMIN (HUMAN) [Concomitant]
     Dates: start: 20041109, end: 20041110
  20. VITAMIN K [Concomitant]
     Dates: start: 20041110, end: 20041110
  21. 1 CONCOMITANT DRUG [Concomitant]
     Indication: DIURETIC THERAPY
     Dates: start: 20041110, end: 20041110
  22. SEGURIL [Concomitant]
     Indication: DIURETIC THERAPY
     Dates: start: 20041111, end: 20041111
  23. FOLIC ACID [Concomitant]
     Indication: ANAEMIA
     Dates: start: 20041112, end: 20041115
  24. ACETAMINOPHEN [Concomitant]
     Dates: start: 20041115, end: 20041116

REACTIONS (1)
  - HEPATITIS VIRAL [None]
